FAERS Safety Report 13204157 (Version 2)
Quarter: 2017Q1

REPORT INFORMATION
  Report Type: Spontaneous
  Country: IN (occurrence: IN)
  Receive Date: 20170209
  Receipt Date: 20170222
  Transmission Date: 20170428
  Serious: Yes (Hospitalization)
  Sender: FDA-Public Use
  Company Number: IN-GLAXOSMITHKLINE-IN2017GSK017050

PATIENT

DRUGS (1)
  1. SUPACEF [Suspect]
     Active Substance: CEFUROXIME
     Indication: PRODUCT USED FOR UNKNOWN INDICATION
     Dosage: 1.5 G, UNK
     Dates: start: 20170203

REACTIONS (3)
  - Chills [Unknown]
  - Product quality issue [Unknown]
  - Pyrexia [Unknown]

NARRATIVE: CASE EVENT DATE: 20170203
